FAERS Safety Report 7412191-9 (Version None)
Quarter: 2011Q2

REPORT INFORMATION
  Report Type: 
  Country: None (occurrence: None)
  Receive Date: 20110413
  Receipt Date: 20110405
  Transmission Date: 20111010
  Serious: Yes (Hospitalization, Other)
  Sender: FDA-Public Use
  Company Number: US-ROCHE-552243

PATIENT
  Sex: Male
  Weight: 81.6 kg

DRUGS (6)
  1. ACCUTANE [Suspect]
     Route: 048
     Dates: start: 20020221, end: 20020624
  2. DILANTIN [Concomitant]
     Dates: start: 19940901
  3. ACCUTANE [Suspect]
     Route: 048
     Dates: start: 19970527, end: 19970701
  4. ACCUTANE [Suspect]
     Dosage: 40 MG TWICE A DAY WITH 40 MG EVERY DAY
     Route: 048
     Dates: start: 19970702, end: 19970822
  5. ACCUTANE [Suspect]
     Route: 048
     Dates: start: 20020120, end: 20020220
  6. ACCUTANE [Suspect]
     Route: 048
     Dates: start: 19970822, end: 19971201

REACTIONS (14)
  - ANXIETY [None]
  - DEEP VEIN THROMBOSIS [None]
  - DRY SKIN [None]
  - ANAL FISSURE [None]
  - COAGULOPATHY [None]
  - INFLAMMATORY BOWEL DISEASE [None]
  - ANAEMIA MACROCYTIC [None]
  - DRY EYE [None]
  - RASH [None]
  - ROAD TRAFFIC ACCIDENT [None]
  - SKIN PAPILLOMA [None]
  - COLITIS ULCERATIVE [None]
  - DEPRESSION [None]
  - CHEILITIS [None]
